FAERS Safety Report 23729050 (Version 1)
Quarter: 2024Q2

REPORT INFORMATION
  Report Type: Spontaneous
  Country: CA (occurrence: CA)
  Receive Date: 20240410
  Receipt Date: 20240410
  Transmission Date: 20240716
  Serious: Yes (Hospitalization, Other)
  Sender: FDA-Public Use
  Company Number: CA-UNITED THERAPEUTICS-UNT-2020-020421

PATIENT
  Age: 66 Year
  Sex: Male

DRUGS (2)
  1. REMODULIN [Suspect]
     Active Substance: TREPROSTINIL
     Indication: Pulmonary arterial hypertension
     Dosage: 0.0896 ?G/KG, CONTINUING
     Route: 058
     Dates: start: 20171120
  2. REMODULIN [Suspect]
     Active Substance: TREPROSTINIL
     Dosage: 0.0693 ?G/KG, CONTINUING
     Route: 058
     Dates: end: 20210116

REACTIONS (4)
  - Right ventricular failure [Not Recovered/Not Resolved]
  - Device breakage [Unknown]
  - Confusional state [Not Recovered/Not Resolved]
  - Aggression [Unknown]

NARRATIVE: CASE EVENT DATE: 20201223
